FAERS Safety Report 24358743 (Version 4)
Quarter: 2024Q4

REPORT INFORMATION
  Report Type: Spontaneous
  Country: US (occurrence: US)
  Receive Date: 20240924
  Receipt Date: 20241125
  Transmission Date: 20250114
  Serious: Yes (Other)
  Sender: PFIZER
  Company Number: US-PFIZER INC-202400259241

PATIENT
  Age: 64 Year
  Sex: Female
  Weight: 60.317 kg

DRUGS (6)
  1. IBRANCE [Suspect]
     Active Substance: PALBOCICLIB
     Indication: Breast cancer metastatic
     Dosage: 125 MG
  2. IBRANCE [Suspect]
     Active Substance: PALBOCICLIB
     Dosage: 100 MG, CYCLIC (1X/DAY FOR 21 DAYS ON AND 7 DAYS OFF)
     Route: 048
     Dates: start: 20181127
  3. COVID-19 VACCINE [Concomitant]
     Indication: Immunisation
     Dosage: DOSE NUMBER UNKNOWN, SINGLE
     Dates: start: 202302, end: 202302
  4. GEMFIBROZIL [Concomitant]
     Active Substance: GEMFIBROZIL
     Indication: Blood cholesterol abnormal
     Dosage: UNK, 1X/DAY
  5. POTASSIUM [Concomitant]
     Active Substance: POTASSIUM
     Dosage: 20 MEQ, 1X/DAY
  6. ROSUVASTATIN CALCIUM [Concomitant]
     Active Substance: ROSUVASTATIN CALCIUM
     Indication: Blood cholesterol abnormal
     Dosage: 40 MG, 1X/DAY

REACTIONS (5)
  - Cyst rupture [Unknown]
  - Sciatica [Recovering/Resolving]
  - Poor quality sleep [Recovering/Resolving]
  - Back pain [Recovered/Resolved]
  - Intervertebral disc protrusion [Unknown]

NARRATIVE: CASE EVENT DATE: 20230201
